FAERS Safety Report 11981381 (Version 1)
Quarter: 2016Q1

REPORT INFORMATION
  Report Type: Spontaneous
  Country: US (occurrence: None)
  Receive Date: 20160129
  Receipt Date: 20160129
  Transmission Date: 20160526
  Serious: Yes (Hospitalization)
  Sender: FDA-Public Use
  Company Number: None

PATIENT
  Age: 70 Year
  Sex: Male

DRUGS (1)
  1. NEXAVAR [Suspect]
     Active Substance: SORAFENIB
     Indication: HEPATITIS VIRAL
     Route: 048
     Dates: start: 20151120, end: 20160127

REACTIONS (3)
  - Malaise [None]
  - Pain [None]
  - Malignant neoplasm progression [None]

NARRATIVE: CASE EVENT DATE: 20160126
